FAERS Safety Report 9379315 (Version 2)
Quarter: 2013Q3

REPORT INFORMATION
  Report Type: Spontaneous
  Country: JP (occurrence: JP)
  Receive Date: 20130702
  Receipt Date: 20130802
  Transmission Date: 20140515
  Serious: Yes (Other)
  Sender: FDA-Public Use
  Company Number: JP-PFIZER INC-2013193244

PATIENT
  Age: 92 Year
  Sex: Female

DRUGS (2)
  1. LYRICA [Suspect]
     Indication: HYPOAESTHESIA
     Dosage: 75 MG/DAY
     Route: 048
     Dates: start: 20130424, end: 20130521
  2. LYRICA [Suspect]
     Dosage: 75 MG, 2X/DAY
     Route: 048
     Dates: start: 20130522, end: 2013

REACTIONS (2)
  - Femur fracture [Unknown]
  - Fall [Unknown]
